FAERS Safety Report 15469475 (Version 2)
Quarter: 2018Q4

REPORT INFORMATION
  Report Type: Report from Study
  Country: US (occurrence: US)
  Receive Date: 20181005
  Receipt Date: 20181017
  Transmission Date: 20190205
  Serious: Yes (Hospitalization, Other)
  Sender: FDA-Public Use
  Company Number: US-TAIHO ONCOLOGY  INC-EU-2018-01467

PATIENT
  Age: 76 Year
  Sex: Female
  Weight: 48.12 kg

DRUGS (20)
  1. PREDNISONE. [Concomitant]
     Active Substance: PREDNISONE
     Dosage: NI
  2. BENAZEPRIL [Concomitant]
     Active Substance: BENAZEPRIL HYDROCHLORIDE
     Dosage: NI
  3. ALPRAZOLAM. [Concomitant]
     Active Substance: ALPRAZOLAM
     Dosage: AS NEEDED
     Route: 048
  4. ACYCLOVIR. [Concomitant]
     Active Substance: ACYCLOVIR
     Dosage: NI
  5. POT CL MICRO [Concomitant]
     Route: 048
  6. LIDOCAINE-PRILOCAINE [Concomitant]
     Active Substance: LIDOCAINE\PRILOCAINE
  7. LONSURF [Suspect]
     Active Substance: TIPIRACIL HYDROCHLORIDE\TRIFLURIDINE
     Indication: RECTAL CANCER
  8. FUROSEMIDE. [Concomitant]
     Active Substance: FUROSEMIDE
     Route: 048
  9. ISOSOURCE [Concomitant]
     Route: 048
  10. ONDANSETRON [Concomitant]
     Active Substance: ONDANSETRON
     Dosage: PRN
     Route: 048
  11. LEVOTHYROXIN [Concomitant]
     Active Substance: LEVOTHYROXINE
     Route: 048
  12. MEGESTROL ACETATE. [Concomitant]
     Active Substance: MEGESTROL ACETATE
     Dosage: IN THE MORNING, STRENGTH 400MG/10ML
     Route: 048
  13. HYDROCO/APAP [Concomitant]
     Active Substance: ACETAMINOPHEN\HYDROCODONE
     Dosage: EVERY 4-6 HOURS
     Route: 048
  14. CANASA [Concomitant]
     Active Substance: MESALAMINE
     Dosage: NI
  15. FAMOTIDINE. [Concomitant]
     Active Substance: FAMOTIDINE
     Route: 048
  16. BAYER LOW DOSE [Concomitant]
     Active Substance: ASPIRIN
  17. LACTULOSE. [Concomitant]
     Active Substance: LACTULOSE
     Dosage: NI
  18. DOXYCYCLINE/HYCLATE [Concomitant]
     Dosage: NI
  19. LONSURF [Suspect]
     Active Substance: TIPIRACIL HYDROCHLORIDE\TRIFLURIDINE
     Indication: COLON CANCER METASTATIC
     Dosage: LONSURF STRENGTH 15 AND 20 MG. CURRENT CYCLE 3
     Route: 048
     Dates: start: 20180620
  20. POLYETH GLYC [Concomitant]
     Active Substance: POLYETHYLENE GLYCOLS

REACTIONS (23)
  - Confusional state [Unknown]
  - Abdominal pain [Unknown]
  - Portal hypertension [Unknown]
  - Fall [Recovered/Resolved]
  - Intestinal stent insertion [Unknown]
  - Weight decreased [Not Recovered/Not Resolved]
  - Fatigue [Unknown]
  - Intestinal obstruction [Unknown]
  - Hypotension [Unknown]
  - Perineal pain [Unknown]
  - Hepatic function abnormal [Unknown]
  - Cellulitis [Recovering/Resolving]
  - Eating disorder [Recovering/Resolving]
  - Anxiety [Unknown]
  - Anaemia [Recovering/Resolving]
  - Rectal haemorrhage [Unknown]
  - Asthenia [Not Recovered/Not Resolved]
  - Carcinoembryonic antigen increased [Unknown]
  - Anorectal discomfort [Unknown]
  - Hypersomnia [Not Recovered/Not Resolved]
  - Oedema peripheral [Recovering/Resolving]
  - Blood albumin decreased [Unknown]
  - Pulmonary mass [Unknown]

NARRATIVE: CASE EVENT DATE: 2018
